FAERS Safety Report 17915783 (Version 1)
Quarter: 2020Q2

REPORT INFORMATION
  Report Type: Spontaneous
  Country: US (occurrence: US)
  Receive Date: 20200618
  Receipt Date: 20200618
  Transmission Date: 20200714
  Serious: Yes (Hospitalization)
  Sender: FDA-Public Use
  Company Number: None

PATIENT
  Age: 44 Year
  Sex: Male

DRUGS (10)
  1. UDENYCA [Suspect]
     Active Substance: PEGFILGRASTIM-CBQV
     Route: 058
     Dates: start: 20200415
  2. BACLOFEN. [Concomitant]
     Active Substance: BACLOFEN
  3. ONDANSETRON [Concomitant]
     Active Substance: ONDANSETRON
  4. SMZ/TMP DS [Concomitant]
     Active Substance: SULFAMETHOXAZOLE\TRIMETHOPRIM
  5. SUCRALFATE. [Concomitant]
     Active Substance: SUCRALFATE
  6. TRAZODONE [Concomitant]
     Active Substance: TRAZODONE HYDROCHLORIDE
  7. PANTOPRAZOLE [Concomitant]
     Active Substance: PANTOPRAZOLE
  8. LEVOFLOXACIN. [Concomitant]
     Active Substance: LEVOFLOXACIN
  9. AMLODIPINE [Concomitant]
     Active Substance: AMLODIPINE BESYLATE
  10. DOXYCYC MONO [Concomitant]
     Active Substance: DOXYCYCLINE

REACTIONS (2)
  - Infection [None]
  - White blood cell count decreased [None]

NARRATIVE: CASE EVENT DATE: 20200611
